FAERS Safety Report 8772363 (Version 2)
Quarter: 2012Q4

REPORT INFORMATION
  Report Type: 
  Country: JP (occurrence: JP)
  Receive Date: 20120906
  Receipt Date: 20120912
  Transmission Date: 20130627
  Serious: Yes (Death, Other)
  Sender: FDA-Public Use
  Company Number: JP-AMGEN-JPNSP2012054671

PATIENT
  Age: 80 Year
  Sex: Female

DRUGS (8)
  1. ENBREL [Suspect]
     Indication: RHEUMATOID ARTHRITIS
     Dosage: 25 mg, 2x/week
     Route: 058
     Dates: start: 20070122, end: 20120727
  2. PREDNISOLONE [Suspect]
     Indication: RHEUMATOID ARTHRITIS
     Dosage: 2 mg, 1x/day
     Route: 048
     Dates: end: 20120807
  3. METOLATE [Suspect]
     Indication: RHEUMATOID ARTHRITIS
     Dosage: 1 DF, 3x/week
     Route: 048
     Dates: start: 20090417, end: 20120727
  4. URSO                               /00465701/ [Concomitant]
     Indication: PROPHYLAXIS
     Dosage: 1 DF, 3x/day
     Route: 048
     Dates: start: 20080509, end: 20120807
  5. LIPITOR [Concomitant]
     Indication: DYSLIPIDAEMIA
     Dosage: 5 mg, 1x/day
     Route: 048
     Dates: start: 20080111, end: 20120807
  6. CLARITH [Concomitant]
     Indication: PROPHYLAXIS
     Dosage: 1 DF, 1x/day
     Route: 048
     Dates: start: 20090417, end: 20120807
  7. TAKEPRON [Concomitant]
     Indication: GASTRITIS PROPHYLAXIS
     Dosage: 1 DF, 1x/day
     Route: 048
     Dates: start: 20090722, end: 20120807
  8. FOLIAMIN [Concomitant]
     Indication: PROPHYLAXIS
     Dosage: 1 mg, 1x/day
     Route: 048
     Dates: start: 20090417, end: 20120807

REACTIONS (2)
  - Renal failure [Fatal]
  - Pneumocystis jiroveci pneumonia [Fatal]
